FAERS Safety Report 4971996-4 (Version None)
Quarter: 2006Q2

REPORT INFORMATION
  Report Type: 
  Country: None (occurrence: None)
  Receive Date: 20060412
  Receipt Date: 20060412
  Transmission Date: 20061013
  Serious: Yes (Other)
  Sender: FDA-Public Use
  Company Number: None

PATIENT
  Age: 24 Year
  Sex: Female
  Weight: 64.8644 kg

DRUGS (1)
  1. ORTHO EVRA [Suspect]
     Indication: MENSTRUATION IRREGULAR
     Dosage: SINGLE TRANSDERMAL PATCH WEEKLY TRANSDERMAL
     Route: 062
     Dates: start: 20050930, end: 20060405

REACTIONS (8)
  - ANXIETY [None]
  - CRYING [None]
  - DEPRESSION [None]
  - DYSMENORRHOEA [None]
  - EMOTIONAL DISORDER [None]
  - HEART RATE INCREASED [None]
  - NAUSEA [None]
  - TREMOR [None]
